FAERS Safety Report 24857719 (Version 3)
Quarter: 2025Q3

REPORT INFORMATION
  Report Type: Report from Study
  Country: US (occurrence: US)
  Receive Date: 20250117
  Receipt Date: 20250926
  Transmission Date: 20251021
  Serious: Yes (Other)
  Sender: ALEXION PHARMACEUTICALS
  Company Number: US-AstraZeneca-CH-00782449A

PATIENT
  Sex: Male

DRUGS (2)
  1. TEZEPELUMAB [Suspect]
     Active Substance: TEZEPELUMAB
     Route: 065
  2. TEZEPELUMAB [Suspect]
     Active Substance: TEZEPELUMAB

REACTIONS (12)
  - Depression [Unknown]
  - Chronic obstructive pulmonary disease [Unknown]
  - Dyspnoea [Unknown]
  - Weight decreased [Unknown]
  - Feeding disorder [Unknown]
  - Chronic respiratory failure [Unknown]
  - Pneumonia [Unknown]
  - Neoplasm malignant [Unknown]
  - Metastasis [Unknown]
  - Wheezing [Unknown]
  - Obstructive sleep apnoea syndrome [Unknown]
  - Pulmonary mass [Unknown]
